FAERS Safety Report 12124461 (Version 1)
Quarter: 2016Q1

REPORT INFORMATION
  Report Type: Spontaneous
  Country: TR (occurrence: TR)
  Receive Date: 20160229
  Receipt Date: 20160229
  Transmission Date: 20160526
  Serious: Yes (Hospitalization, Other)
  Sender: FDA-Public Use
  Company Number: TR-CIPLA LTD.-2016TR01476

PATIENT

DRUGS (2)
  1. RISPERIDONE. [Suspect]
     Active Substance: RISPERIDONE
     Indication: AUTISM
     Route: 065
  2. OLANZAPINE. [Suspect]
     Active Substance: OLANZAPINE
     Indication: AUTISM
     Dosage: 10 MG, QD
     Route: 030

REACTIONS (6)
  - Myalgia [Unknown]
  - Restlessness [Unknown]
  - Head banging [Unknown]
  - Drug ineffective [Unknown]
  - Rhabdomyolysis [Unknown]
  - Psychomotor hyperactivity [Unknown]
